FAERS Safety Report 4685017-4 (Version None)
Quarter: 2005Q2

REPORT INFORMATION
  Report Type: 
  Country: None (occurrence: None)
  Receive Date: 20050531
  Receipt Date: 20050331
  Transmission Date: 20051028
  Serious: No
  Sender: FDA-Public Use
  Company Number: WAES 0504USA00070

PATIENT
  Age: 76 Year
  Sex: Male
  Weight: 74.8435 kg

DRUGS (5)
  1. ZETIA [Suspect]
     Indication: HYPERLIPIDAEMIA
     Dosage: 10 MG/DAILY/PO
     Route: 048
     Dates: start: 20050201, end: 20050201
  2. DIOVAN [Concomitant]
  3. HYDRODIURIL [Concomitant]
  4. LIPITOR [Concomitant]
  5. NORVASC [Concomitant]

REACTIONS (2)
  - GLOSSITIS [None]
  - GLOSSODYNIA [None]
